FAERS Safety Report 6771967-1 (Version None)
Quarter: 2010Q2

REPORT INFORMATION
  Report Type: 
  Country: None (occurrence: None)
  Receive Date: 20100616
  Receipt Date: 20090824
  Transmission Date: 20101027
  Serious: No
  Sender: FDA-Public Use
  Company Number: US-ASTRAZENECA-2009SE09581

PATIENT
  Age: 22997 Day
  Sex: Female

DRUGS (1)
  1. RHINOCORT [Suspect]
     Indication: CHRONIC SINUSITIS
     Dosage: 2 SPRAYS TWO TIMES A DAY
     Route: 045

REACTIONS (2)
  - DRUG DOSE OMISSION [None]
  - NASAL CONGESTION [None]
